FAERS Safety Report 6076430-1 (Version None)
Quarter: 2009Q1

REPORT INFORMATION
  Report Type: 
  Country: None (occurrence: None)
  Receive Date: 20090213
  Receipt Date: 20090202
  Transmission Date: 20090719
  Serious: Yes (Death, Hospitalization, Other)
  Sender: FDA-Public Use
  Company Number: US-BAYER-200912374NA

PATIENT
  Age: 74 Year
  Sex: Female

DRUGS (26)
  1. MAGNEVIST [Suspect]
     Indication: NUCLEAR MAGNETIC RESONANCE IMAGING
     Dosage: AS USED: 40 ML
     Dates: start: 20020223, end: 20020223
  2. MAGNEVIST [Suspect]
     Dosage: AS USED: 60 ML
     Dates: start: 20060115, end: 20060115
  3. MAGNEVIST [Suspect]
     Dates: start: 20070206, end: 20070206
  4. MAGNEVIST [Suspect]
     Dosage: AS USED: 40 ML
     Dates: start: 20050609, end: 20050609
  5. SENSIPAR [Concomitant]
     Dosage: TOTAL DAILY DOSE: 30 MG
     Route: 048
  6. AMIODARONE [Concomitant]
     Dosage: TOTAL DAILY DOSE: 200 MG
     Route: 048
  7. NEPHROCAPS [Concomitant]
     Route: 048
  8. DURAGESIC-100 [Concomitant]
     Dosage: TOTAL DAILY DOSE: 50  ?G
     Route: 062
  9. DURAGESIC-100 [Concomitant]
     Dosage: AS USED: 50 MG
  10. NEXIUM [Concomitant]
     Dosage: TOTAL DAILY DOSE: 40 MG
  11. SODIUM CHLORIDE [Concomitant]
     Route: 048
  12. LOPRESSOR [Concomitant]
     Dosage: TOTAL DAILY DOSE: 75 MG  UNIT DOSE: 25 MG
     Route: 048
  13. ASPIRIN [Concomitant]
     Dosage: TOTAL DAILY DOSE: 325 MG
     Route: 048
  14. RENAGEL [Concomitant]
     Route: 048
  15. TYLENOL W/ CODEINE NO. 3 [Concomitant]
     Indication: PAIN IN EXTREMITY
     Route: 048
  16. DEMEROL [Concomitant]
     Indication: PAIN
  17. BENADRYL [Concomitant]
     Route: 048
  18. ISOVUE-370 [Concomitant]
     Dosage: AS USED: 85 MG
     Dates: start: 20070207, end: 20070207
  19. TYLENOL [Concomitant]
     Indication: PAIN
  20. COUMADIN [Concomitant]
     Dosage: TOTAL DAILY DOSE: 2.5 MG
     Route: 048
  21. COUMADIN [Concomitant]
     Dosage: TOTAL DAILY DOSE: 5 MG
     Route: 048
  22. COZAAR [Concomitant]
  23. ZETIA [Concomitant]
  24. PHOSLO [Concomitant]
  25. LORAZEPAM [Concomitant]
  26. CODEINE [Concomitant]

REACTIONS (25)
  - ANXIETY [None]
  - APHASIA [None]
  - BURNING SENSATION [None]
  - CEREBROVASCULAR ACCIDENT [None]
  - DEPRESSION [None]
  - EXTREMITY CONTRACTURE [None]
  - FATIGUE [None]
  - GAIT DISTURBANCE [None]
  - HEMIPARESIS [None]
  - INSOMNIA [None]
  - JOINT CONTRACTURE [None]
  - JOINT RANGE OF MOTION DECREASED [None]
  - MENINGEAL DISORDER [None]
  - MOBILITY DECREASED [None]
  - MUSCULOSKELETAL STIFFNESS [None]
  - NEPHROGENIC SYSTEMIC FIBROSIS [None]
  - OCULAR ICTERUS [None]
  - OEDEMA PERIPHERAL [None]
  - PAIN IN EXTREMITY [None]
  - PITTING OEDEMA [None]
  - SKIN DISCOLOURATION [None]
  - SKIN HYPERPIGMENTATION [None]
  - SKIN HYPERTROPHY [None]
  - SKIN INDURATION [None]
  - SKIN TIGHTNESS [None]
